FAERS Safety Report 5723531-0 (Version None)
Quarter: 2008Q2

REPORT INFORMATION
  Report Type: 
  Country: None (occurrence: None)
  Receive Date: 20080430
  Receipt Date: 20080423
  Transmission Date: 20081010
  Serious: Yes (Hospitalization)
  Sender: FDA-Public Use
  Company Number: A0713534A

PATIENT
  Age: 38 Year
  Sex: Female

DRUGS (3)
  1. LAMICTAL [Suspect]
     Indication: CONVULSION
     Dosage: 50MG TWICE PER DAY
     Route: 048
     Dates: start: 20060101
  2. ONDANSETRON [Suspect]
     Indication: IMPAIRED GASTRIC EMPTYING
     Route: 065
     Dates: start: 20080401, end: 20080401
  3. NO CONCURRENT MEDICATION [Concomitant]

REACTIONS (9)
  - ABDOMINAL DISTENSION [None]
  - ABDOMINAL PAIN UPPER [None]
  - DIARRHOEA [None]
  - DRUG INEFFECTIVE [None]
  - EATING DISORDER [None]
  - HEADACHE [None]
  - IMPAIRED GASTRIC EMPTYING [None]
  - NAUSEA [None]
  - PHARMACEUTICAL PRODUCT COMPLAINT [None]
